FAERS Safety Report 17976866 (Version 1)
Quarter: 2020Q3

REPORT INFORMATION
  Report Type: Spontaneous
  Country: US (occurrence: US)
  Receive Date: 20200702
  Receipt Date: 20200702
  Transmission Date: 20201103
  Serious: Yes (Other)
  Sender: FDA-Public Use
  Company Number: US-PURDUE PHARMA-USA-2020-0156968

PATIENT
  Sex: Female

DRUGS (2)
  1. OXYCONTIN [Suspect]
     Active Substance: OXYCODONE HYDROCHLORIDE
     Dosage: 20 MG, UNK
     Route: 048
  2. OXYCONTIN [Suspect]
     Active Substance: OXYCODONE HYDROCHLORIDE
     Indication: PRODUCT USED FOR UNKNOWN INDICATION
     Dosage: 80 MG, UNK
     Route: 048

REACTIONS (12)
  - Drug abuse [Unknown]
  - Depression [Unknown]
  - Physical assault [Unknown]
  - Suicidal ideation [Unknown]
  - Somnolence [Unknown]
  - Aggression [Unknown]
  - Drug dependence [Unknown]
  - Mood swings [Unknown]
  - Libido decreased [Unknown]
  - Product prescribing issue [Unknown]
  - Fatigue [Unknown]
  - Anger [Unknown]
